FAERS Safety Report 4546528-5 (Version None)
Quarter: 2005Q1

REPORT INFORMATION
  Report Type: 
  Country: None (occurrence: None)
  Receive Date: 20050106
  Receipt Date: 20041230
  Transmission Date: 20050727
  Serious: Yes (Life-Threatening)
  Sender: FDA-Public Use
  Company Number: FR-GLAXOSMITHKLINE-B0363290A

PATIENT
  Age: 54 Year
  Sex: Male

DRUGS (1)
  1. CLAMOXYL [Suspect]
     Indication: BRONCHITIS
     Route: 048
     Dates: end: 20040331

REACTIONS (10)
  - ANAPHYLACTIC SHOCK [None]
  - BLOOD PRESSURE DECREASED [None]
  - CHEST PAIN [None]
  - ELECTROCARDIOGRAM ST SEGMENT DEPRESSION [None]
  - ERYTHEMA [None]
  - GENERAL PHYSICAL HEALTH DETERIORATION [None]
  - MALAISE [None]
  - MEDICATION ERROR [None]
  - SELF-MEDICATION [None]
  - SHOCK [None]
